FAERS Safety Report 11661416 (Version 1)
Quarter: 2015Q4

REPORT INFORMATION
  Report Type: Spontaneous
  Country: US (occurrence: US)
  Receive Date: 20151026
  Receipt Date: 20151026
  Transmission Date: 20160304
  Serious: Yes (Hospitalization, Other)
  Sender: FDA-Public Use
  Company Number: US-DSJP-DSU-2015-120990

PATIENT

DRUGS (10)
  1. VESICARE [Concomitant]
     Active Substance: SOLIFENACIN SUCCINATE
     Dosage: 5 MG, QD
     Dates: start: 2005, end: 2014
  2. BENICAR [Suspect]
     Active Substance: OLMESARTAN MEDOXOMIL
     Dosage: 20 MG, QD
     Route: 048
     Dates: start: 201306, end: 201310
  3. CYMBALTA [Concomitant]
     Active Substance: DULOXETINE HYDROCHLORIDE
     Dosage: UNK
     Dates: start: 201304, end: 201308
  4. BENICAR [Suspect]
     Active Substance: OLMESARTAN MEDOXOMIL
     Dosage: 20 MG, QD
     Route: 048
     Dates: start: 201303, end: 201304
  5. NORVASC [Concomitant]
     Active Substance: AMLODIPINE BESYLATE
     Dosage: UNK
     Dates: start: 201503
  6. BENICAR HCT [Suspect]
     Active Substance: HYDROCHLOROTHIAZIDE\OLMESARTAN MEDOXOMIL
     Dosage: 40/12.5 MG
     Route: 048
     Dates: start: 20121116, end: 201303
  7. BENICAR [Suspect]
     Active Substance: OLMESARTAN MEDOXOMIL
     Indication: HYPERTENSION
     Dosage: UNK
     Dates: start: 2009
  8. BENICAR HCT [Suspect]
     Active Substance: HYDROCHLOROTHIAZIDE\OLMESARTAN MEDOXOMIL
     Indication: HYPERTENSION
     Dosage: 20/12.5 MG
     Route: 048
     Dates: start: 200910, end: 20121116
  9. NORVASC [Concomitant]
     Active Substance: AMLODIPINE BESYLATE
     Dosage: 5 MG, QD
     Dates: start: 200503, end: 201406
  10. COUMADIN [Concomitant]
     Active Substance: WARFARIN SODIUM
     Dosage: UNK
     Dates: start: 201212, end: 201306

REACTIONS (29)
  - Protein S deficiency [Unknown]
  - Proctitis [Unknown]
  - Pyrexia [Unknown]
  - Hiatus hernia [Unknown]
  - Gastrooesophageal reflux disease [Unknown]
  - Depression [Recovering/Resolving]
  - Sepsis [Unknown]
  - Decreased appetite [Unknown]
  - Electrolyte imbalance [Unknown]
  - Acute kidney injury [Recovered/Resolved]
  - Dehydration [Recovered/Resolved]
  - Duodenitis [Unknown]
  - Gastritis [Unknown]
  - Weight decreased [Recovered/Resolved]
  - Haemorrhoids [Unknown]
  - Asthenia [Unknown]
  - Malabsorption [Recovered/Resolved]
  - Colitis microscopic [Recovering/Resolving]
  - Flatulence [Unknown]
  - Renal cyst [Unknown]
  - Hypokalaemia [Recovered/Resolved]
  - Clostridium difficile colitis [Recovered/Resolved]
  - Deep vein thrombosis [Unknown]
  - Protein C deficiency [Unknown]
  - Hypotension [Unknown]
  - Malnutrition [Recovered/Resolved]
  - Coeliac disease [Recovering/Resolving]
  - Pancreatic insufficiency [Recovering/Resolving]
  - Benign lymph node neoplasm [Unknown]

NARRATIVE: CASE EVENT DATE: 2012
